FAERS Safety Report 7496040-9 (Version None)
Quarter: 2011Q2

REPORT INFORMATION
  Report Type: 
  Country: None (occurrence: None)
  Receive Date: 20110523
  Receipt Date: 20110517
  Transmission Date: 20111010
  Serious: Yes (Hospitalization)
  Sender: FDA-Public Use
  Company Number: JP-SANOFI-AVENTIS-2011SA022883

PATIENT
  Age: 31 Year
  Sex: Male
  Weight: 105 kg

DRUGS (10)
  1. ACTOS [Concomitant]
     Indication: DIABETES MELLITUS
     Dosage: FROM 4 WEEKS BEFORE THE ADMINISTRATION OF INSULIN GLULISINE.
     Route: 048
     Dates: end: 20100906
  2. LANTUS [Concomitant]
     Indication: DIABETES MELLITUS
     Dosage: MORNING; FROM 4 WEEKS BEFORE THE ADMINISTRATION OF INSULIN GLULISINE.
     Route: 058
     Dates: end: 20100906
  3. ACECOL [Concomitant]
     Dosage: IT WAS STARTED BEFORE THE ADMINISTRATION OF INSULIN GLULISINE.
     Route: 048
     Dates: end: 20100906
  4. AMARYL [Concomitant]
     Indication: DIABETES MELLITUS
     Dosage: FROM 4 WEEKS BEFORE THE ADMINISTRATION OF INSULIN GLULISINE.
     Route: 048
     Dates: end: 20100906
  5. ATELEC [Concomitant]
     Dosage: IT WAS STARTED BEFORE THE ADMINISTRATION OF INSULIN GLULISINE.
     Route: 048
     Dates: end: 20100906
  6. CRESTOR [Concomitant]
     Dosage: IT WAS STARTED BEFORE THE ADMINISTRATION OF INSULIN GLULISINE.
     Route: 048
     Dates: end: 20100906
  7. APIDRA [Suspect]
     Indication: DIABETES MELLITUS
     Dosage: EVENING
     Route: 058
     Dates: start: 20100906, end: 20100906
  8. MIGLITOL [Concomitant]
     Indication: DIABETES MELLITUS
     Dosage: FROM 4 WEEKS BEFORE THE ADMINISTRATION OF INSULIN GLULISINE.
     Route: 048
     Dates: end: 20100906
  9. METFORMIN HCL [Concomitant]
     Indication: DIABETES MELLITUS
     Dosage: FROM 4 WEEKS BEFORE THE ADMINISTRATION OF INSULIN GLULISINE.
     Route: 048
     Dates: end: 20100906
  10. OLMESARTAN MEDOXOMIL [Concomitant]
     Dosage: IT WAS STARTED BEFORE THE ADMINISTRATION OF INSULIN GLULISINE.
     Route: 048
     Dates: end: 20100906

REACTIONS (1)
  - RETINAL HAEMORRHAGE [None]
